FAERS Safety Report 5121297-9 (Version None)
Quarter: 2006Q4

REPORT INFORMATION
  Report Type: 
  Country: None (occurrence: None)
  Receive Date: 20061002
  Receipt Date: 20060921
  Transmission Date: 20070319
  Serious: Yes (Hospitalization)
  Sender: FDA-Public Use
  Company Number: HQWYE059022SEP06

PATIENT
  Sex: Female

DRUGS (6)
  1. RAPAMUNE [Suspect]
     Indication: PROPHYLAXIS AGAINST TRANSPLANT REJECTION
     Dosage: 3 MG 1X PER 1 DAY
  2. PREDNISONE TAB [Concomitant]
  3. MYCOPHENOLATE MOFETIL [Concomitant]
  4. IRBESARTAN [Concomitant]
  5. CIPROFIBRATE (CIPROFIBRATE) [Concomitant]
  6. SULFAMETHOXAZOLE + TRIMETHOPRIM [Concomitant]

REACTIONS (5)
  - CAESAREAN SECTION [None]
  - FOETAL GROWTH RETARDATION [None]
  - PREMATURE LABOUR [None]
  - SEPSIS NEONATAL [None]
  - TRANSMISSION OF DRUG VIA SEMEN [None]
